FAERS Safety Report 5798710-7 (Version None)
Quarter: 2008Q3

REPORT INFORMATION
  Report Type: 
  Country: None (occurrence: None)
  Receive Date: 20080702
  Receipt Date: 20080625
  Transmission Date: 20090109
  Serious: Yes (Other)
  Sender: FDA-Public Use
  Company Number: CA-JNJFOC-20080604990

PATIENT
  Sex: Female

DRUGS (2)
  1. REMICADE [Suspect]
     Indication: ANKYLOSING SPONDYLITIS
     Route: 042
  2. TYLENOL [Concomitant]

REACTIONS (3)
  - CEREBRAL HAEMORRHAGE [None]
  - INTRACRANIAL ANEURYSM [None]
  - LYMPHOCYTIC INFILTRATION [None]
